FAERS Safety Report 9469620 (Version 3)
Quarter: 2013Q3

REPORT INFORMATION
  Report Type: Report from Study
  Country: US (occurrence: US)
  Receive Date: 20130822
  Receipt Date: 20130927
  Transmission Date: 20140515
  Serious: No
  Sender: FDA-Public Use
  Company Number: US-009507513-1308USA008431

PATIENT
  Sex: Female

DRUGS (8)
  1. VICTRELIS [Suspect]
     Indication: CHRONIC HEPATITIS C
     Dosage: UNK
     Dates: start: 20130808
  2. PEGASYS [Suspect]
     Indication: CHRONIC HEPATITIS C
     Dosage: 180 MICROGRAM, QW, PROCLICK
     Route: 065
     Dates: start: 20130707
  3. RIBASPHERE [Suspect]
     Indication: CHRONIC HEPATITIS C
     Dosage: 1000 MG DIVIDED
     Route: 065
  4. LOMOTIL (ATROPINE SULFATE (+) DIPHENOXYLATE HYDROCHLORIDE) [Concomitant]
     Dosage: UNK
  5. TRUVADA [Concomitant]
     Dosage: UNK
  6. INTELENCE [Concomitant]
     Dosage: UNK
  7. ACYCLOVIR [Concomitant]
     Dosage: UNK
  8. VITAMIN D (UNSPECIFIED) [Concomitant]

REACTIONS (23)
  - Vision blurred [Unknown]
  - Paraesthesia [Unknown]
  - Pruritus [Unknown]
  - White blood cell count decreased [Unknown]
  - Thirst [Unknown]
  - Nocturia [Unknown]
  - Mood swings [Unknown]
  - Urinary incontinence [Unknown]
  - Peripheral coldness [Unknown]
  - Conjunctivitis [Unknown]
  - Vulvovaginal mycotic infection [Unknown]
  - Dysuria [Unknown]
  - Insomnia [Unknown]
  - Abdominal pain upper [Unknown]
  - Headache [Not Recovered/Not Resolved]
  - Diarrhoea [Not Recovered/Not Resolved]
  - Dizziness [Not Recovered/Not Resolved]
  - Insomnia [Unknown]
  - Abdominal discomfort [Unknown]
  - Tremor [Unknown]
  - Mood altered [Unknown]
  - Anger [Unknown]
  - Dry mouth [Unknown]
